FAERS Safety Report 24184962 (Version 1)
Quarter: 2024Q3

REPORT INFORMATION
  Report Type: Spontaneous
  Country: ES (occurrence: ES)
  Receive Date: 20240807
  Receipt Date: 20240807
  Transmission Date: 20241016
  Serious: Yes (Hospitalization, Other)
  Sender: MYLAN
  Company Number: ES-ARISTO PHARMA-LEVOF202006101

PATIENT
  Age: 28 Year
  Sex: Female

DRUGS (4)
  1. LEVOFLOXACIN [Suspect]
     Active Substance: LEVOFLOXACIN
     Indication: Respiratory tract infection
     Dosage: UNK, 48 HOURS BEFORE
     Route: 065
  2. LEVOFLOXACIN [Suspect]
     Active Substance: LEVOFLOXACIN
     Indication: Respiratory tract infection
     Dosage: 500 MILLIGRAM, BID  (2791A) EVERY 12H F 0.1 TO 1 PERCENT
     Route: 048
     Dates: start: 20171211, end: 20171213
  3. AZITHROMYCIN [Concomitant]
     Active Substance: AZITHROMYCIN
     Indication: Primary ciliary dyskinesia
     Dosage: UNK
     Route: 055
  4. AZITHROMYCIN [Concomitant]
     Active Substance: AZITHROMYCIN
     Indication: Respiratory tract infection

REACTIONS (5)
  - Pancreatitis acute [Recovering/Resolving]
  - Abdominal pain upper [Recovered/Resolved]
  - Amylase increased [Recovered/Resolved]
  - Lipase increased [Recovered/Resolved]
  - Off label use [Recovered/Resolved]

NARRATIVE: CASE EVENT DATE: 20171212
